FAERS Safety Report 5827348-8 (Version None)
Quarter: 2008Q3

REPORT INFORMATION
  Report Type: 
  Country: None (occurrence: None)
  Receive Date: 20080730
  Receipt Date: 20080716
  Transmission Date: 20090109
  Serious: Yes (Hospitalization)
  Sender: FDA-Public Use
  Company Number: US-AMGEN-QUU286463

PATIENT
  Sex: Female
  Weight: 17.3 kg

DRUGS (4)
  1. ENBREL [Suspect]
     Indication: PSORIATIC ARTHROPATHY
     Route: 064
     Dates: start: 19991019
  2. ENBREL [Suspect]
     Indication: PSORIASIS
  3. VITAMIN B-12 [Concomitant]
     Route: 064
  4. UNISOM [Concomitant]
     Route: 064

REACTIONS (1)
  - ANAL ATRESIA [None]
